FAERS Safety Report 5660489-7 (Version None)
Quarter: 2008Q1

REPORT INFORMATION
  Report Type: 
  Country: None (occurrence: None)
  Receive Date: 20080306
  Receipt Date: 20080221
  Transmission Date: 20080703
  Serious: Yes (Hospitalization)
  Sender: FDA-Public Use
  Company Number: 2008JP000972

PATIENT
  Age: 87 Year
  Sex: Male

DRUGS (7)
  1. PROGRAF [Suspect]
     Indication: RHEUMATOID ARTHRITIS
     Dosage: 2 MG, /D, ORAL; 1 MG, /D, ORAL
     Route: 048
     Dates: end: 20080130
  2. PROGRAF [Suspect]
     Indication: RHEUMATOID ARTHRITIS
     Dosage: 2 MG, /D, ORAL; 1 MG, /D, ORAL
     Route: 048
     Dates: start: 20080131
  3. ENBREL [Concomitant]
  4. PREDNISOLONE [Concomitant]
  5. TAGAMET [Concomitant]
  6. SELBEX                 (TEPRENONE) [Concomitant]
  7. MAGNESIUM OXIDE                 (MAGNESIUM OXIDE) [Concomitant]

REACTIONS (2)
  - BLOOD CREATININE INCREASED [None]
  - ELECTROLYTE IMBALANCE [None]
